FAERS Safety Report 4268119-6 (Version None)
Quarter: 2004Q1

REPORT INFORMATION
  Report Type: 
  Country: None (occurrence: None)
  Receive Date: 20040109
  Receipt Date: 20031222
  Transmission Date: 20041129
  Serious: Yes (Death, Hospitalization)
  Sender: FDA-Public Use
  Company Number: US-ROCHE-354538

PATIENT
  Age: 75 Year
  Sex: Male
  Weight: 65.3 kg

DRUGS (9)
  1. CAPECITABINE [Suspect]
     Dosage: ACTUAL DOSE RECIEVED WAS 1800 MG BID GIVEN INTERMITTENTLY EVERY TWO WEEKS FOLLOWED BY ONE WEEK REST.
     Route: 048
     Dates: start: 20031111, end: 20031216
  2. OXALIPLATIN [Suspect]
     Dosage: ACTUAL DOSE RECIVED WAS 240 MG ADMINISTERED ON DAY ONE OF A THREE WEEK CYCLE.
     Route: 042
     Dates: start: 20031111, end: 20031216
  3. BENICAR [Concomitant]
     Dates: start: 20030815, end: 20031218
  4. LOPRESSOR [Concomitant]
     Dates: start: 20011220, end: 20031221
  5. LOTENSIN [Concomitant]
     Dates: start: 20031021, end: 20031218
  6. HYDROCHLOROTHIAZIDE [Concomitant]
     Dates: start: 20031021, end: 20031218
  7. ZOCOR [Concomitant]
     Dates: start: 20030515, end: 20031224
  8. COMPAZINE [Concomitant]
     Dates: start: 20031218
  9. IMODIUM [Concomitant]
     Dates: start: 20031218

REACTIONS (8)
  - ACUTE MYOCARDIAL INFARCTION [None]
  - BLOOD POTASSIUM DECREASED [None]
  - DIARRHOEA [None]
  - DRUG INEFFECTIVE [None]
  - ELECTROCARDIOGRAM QRS COMPLEX PROLONGED [None]
  - HYPOTENSION [None]
  - RENAL FAILURE ACUTE [None]
  - VENTRICULAR TACHYCARDIA [None]
